FAERS Safety Report 5269689-1 (Version None)
Quarter: 2007Q1

REPORT INFORMATION
  Report Type: 
  Country: None (occurrence: None)
  Receive Date: 20070313
  Receipt Date: 20070222
  Transmission Date: 20070707
  Serious: Yes (Hospitalization)
  Sender: FDA-Public Use
  Company Number: 02100-EUR-07-0026

PATIENT
  Age: 90 Year

DRUGS (1)
  1. CILOSTAZOL [Suspect]
     Indication: ARTERIAL OCCLUSIVE DISEASE
     Dosage: ORAL
     Route: 048

REACTIONS (1)
  - SHOCK [None]
